FAERS Safety Report 5617254-6 (Version None)
Quarter: 2008Q1

REPORT INFORMATION
  Report Type: 
  Country: None (occurrence: None)
  Receive Date: 20080205
  Receipt Date: 20080205
  Transmission Date: 20080703
  Serious: Yes (Life-Threatening, Disabling, Other)
  Sender: FDA-Public Use
  Company Number: None

PATIENT
  Age: 33 Year
  Sex: Female

DRUGS (1)
  1. FLEXERIL [Suspect]
     Indication: CERVICAL VERTEBRAL FRACTURE
     Dosage: DENIAL OF XRAY NECK  1995-1998 SURGERY
     Dates: start: 19930301, end: 19930308

REACTIONS (2)
  - DRUG ABUSE [None]
  - SOMNOLENCE [None]
